FAERS Safety Report 6626487-1 (Version None)
Quarter: 2010Q1

REPORT INFORMATION
  Report Type: 
  Country: None (occurrence: None)
  Receive Date: 20100309
  Receipt Date: 20100309
  Transmission Date: 20100710
  Serious: Yes (Life-Threatening, Hospitalization, Other)
  Sender: FDA-Public Use
  Company Number: None

PATIENT
  Age: 74 Year
  Sex: Male
  Weight: 70.7611 kg

DRUGS (1)
  1. SELEGILINE HCL [Suspect]
     Dosage: 5MG 2 TIMES A DAY
     Dates: start: 20091110, end: 20091210

REACTIONS (6)
  - ASPIRATION [None]
  - FOREIGN BODY [None]
  - HALLUCINATION [None]
  - NIGHTMARE [None]
  - PNEUMONIA [None]
  - SLEEP DISORDER [None]
